FAERS Safety Report 10697973 (Version 2)
Quarter: 2015Q1

REPORT INFORMATION
  Report Type: Spontaneous
  Country: US (occurrence: US)
  Receive Date: 20150108
  Receipt Date: 20150320
  Transmission Date: 20150721
  Serious: Yes (Hospitalization, Other)
  Sender: FDA-Public Use
  Company Number: US-PFIZER INC-2015001306

PATIENT
  Age: 59 Year
  Sex: Female
  Weight: 119 kg

DRUGS (17)
  1. SYNTHROID [Concomitant]
     Active Substance: LEVOTHYROXINE SODIUM
     Indication: HYPERTHYROIDISM
     Dosage: 88 ?G, 1X/DAY
     Route: 048
  2. TOPROL XL [Concomitant]
     Active Substance: METOPROLOL SUCCINATE
     Dosage: 50 MG, DAILY
     Route: 048
  3. NORCO [Concomitant]
     Active Substance: ACETAMINOPHEN\HYDROCODONE BITARTRATE
     Indication: PAIN
     Dosage: HYDROCODONE BITARTRATE: 7.5/PARACETAMOL: 325 Q 6 PRN
     Dates: start: 201404
  4. PREDNISONE. [Concomitant]
     Active Substance: PREDNISONE
     Dosage: 50 MG, UNK
     Route: 048
     Dates: start: 20130419, end: 20150302
  5. METOPROLOL TARTRATE. [Suspect]
     Active Substance: METOPROLOL TARTRATE
     Dosage: 20 OR 25MG, 1X/DAY
     Route: 048
  6. GABAPENTIN. [Concomitant]
     Active Substance: GABAPENTIN
     Indication: NEUROPATHY PERIPHERAL
     Dosage: 300 MG, 2X/DAY
     Route: 048
     Dates: start: 201403
  7. FLOMAX [Concomitant]
     Active Substance: TAMSULOSIN HYDROCHLORIDE
     Dosage: UNK
     Route: 048
  8. HUMALOG MIX [Concomitant]
     Active Substance: INSULIN LISPRO
     Dosage: (INSULIN: 75 / LISPRO: 25)
     Route: 058
  9. AMOXICILLIN SODIUM/CLAVULANATE POTASSIUM [Concomitant]
     Dosage: 875-125 MG
     Route: 048
     Dates: start: 20140718, end: 20150302
  10. GABAPENTIN. [Concomitant]
     Active Substance: GABAPENTIN
     Indication: PAIN
  11. MAGNESIUM [Concomitant]
     Active Substance: MAGNESIUM
  12. IRON [Concomitant]
     Active Substance: IRON
  13. HYDROCHLOROTHIAZIDE. [Concomitant]
     Active Substance: HYDROCHLOROTHIAZIDE
     Dosage: 300 MG, 2X/DAY
     Route: 048
  14. METOPROLOL SUCCINATE. [Concomitant]
     Active Substance: METOPROLOL SUCCINATE
     Dosage: 50 MG, 1X/DAY
     Route: 048
  15. INLYTA [Suspect]
     Active Substance: AXITINIB
     Indication: RENAL CANCER METASTATIC
     Dosage: 5 MG, 2X/DAY
     Route: 048
     Dates: start: 20140824
  16. ASPIRIN. [Concomitant]
     Active Substance: ASPIRIN
     Indication: PROPHYLAXIS
     Dosage: 81 MG, 1X/DAY
     Route: 048
  17. ACYCLOVIR. [Concomitant]
     Active Substance: ACYCLOVIR
     Dosage: 400 MG, 2X/DAY
     Route: 048
     Dates: start: 20140110, end: 20150105

REACTIONS (5)
  - Bradycardia [Recovered/Resolved]
  - Ureteric obstruction [Unknown]
  - Atrial fibrillation [Not Recovered/Not Resolved]
  - Acute kidney injury [Unknown]
  - Urinary retention [Unknown]

NARRATIVE: CASE EVENT DATE: 20141228
